FAERS Safety Report 8484184-4 (Version None)
Quarter: 2012Q3

REPORT INFORMATION
  Report Type: 
  Country: None (occurrence: None)
  Receive Date: 20120703
  Receipt Date: 20120629
  Transmission Date: 20120928
  Serious: Yes (Other)
  Sender: FDA-Public Use
  Company Number: VE-BAYER-2012-060174

PATIENT
  Age: 54 Year
  Sex: Female

DRUGS (5)
  1. LASIX [Concomitant]
     Indication: ARRHYTHMIA
     Dosage: 20 MG, UNK
  2. EFFONTIL [Concomitant]
     Indication: ARRHYTHMIA
     Dosage: 5 MG, UNK
  3. BETASERON [Suspect]
     Indication: MULTIPLE SCLEROSIS
     Dosage: 250 ?G, QOD
     Route: 058
     Dates: start: 20070915, end: 20120602
  4. AMIODARONE HCL [Concomitant]
     Indication: ARRHYTHMIA
  5. SERTRALINE HYDROCHLORIDE [Concomitant]
     Indication: ARRHYTHMIA

REACTIONS (1)
  - APPLICATION SITE NECROSIS [None]
